FAERS Safety Report 8935112 (Version 4)
Quarter: 2012Q4

REPORT INFORMATION
  Report Type: 
  Country: CN (occurrence: CN)
  Receive Date: 20121129
  Receipt Date: 20121227
  Transmission Date: 20130627
  Serious: Yes (Death, Life-Threatening)
  Sender: FDA-Public Use
  Company Number: CN-NAPPMUNDI-GBR-2012-0012211

PATIENT
  Age: 77 Year
  Sex: Female

DRUGS (30)
  1. OXYCODONE HCL [Suspect]
     Indication: PRODUCT USED FOR UNKNOWN INDICATION
     Dosage: 20 mg, UNK
     Route: 048
  2. OXYCODONE HCL [Suspect]
  3. MORPHINE [Suspect]
     Indication: PRODUCT USED FOR UNKNOWN INDICATION
     Dosage: UNK
     Route: 042
     Dates: start: 20121111
  4. POTASSIUM CHLORIDE [Concomitant]
     Dosage: 10 ml, qid
     Route: 042
     Dates: start: 20121107, end: 20121111
  5. VITAMIN B-COMPLEX WITH VITAMIN C [Concomitant]
     Dosage: 2 gram, qid
     Dates: start: 20121107, end: 20121111
  6. VITAMIN B-COMPLEX WITH VITAMIN C [Concomitant]
     Dosage: UNK
     Dates: start: 20121112, end: 20121112
  7. DEXAMETHASONE [Concomitant]
     Dosage: 5 mg, qid
     Dates: start: 20121108, end: 20121110
  8. FAT EMULSIONS [Concomitant]
     Dosage: 250 ml, qid
     Dates: start: 20121108, end: 20121111
  9. AMINO ACID [Concomitant]
     Dosage: 250 ml, qid
     Route: 042
     Dates: start: 20121108, end: 20121109
  10. CIMETIDINE [Concomitant]
     Dosage: 0.4 gram, qid
     Dates: start: 20121110, end: 20121112
  11. LEVOFLOXACIN [Concomitant]
     Dosage: 0.3 gram, qid
     Dates: start: 20121111, end: 20121112
  12. INSULIN                            /00646001/ [Concomitant]
     Dosage: 8 unit, qid
  13. CITICOLINE [Concomitant]
     Dosage: 0.5 gram, qid
     Dates: start: 20121115
  14. SODIUM OZAGREL [Concomitant]
     Dosage: 80 mg, qid
     Route: 042
  15. CEFUROXIME [Concomitant]
     Dosage: 1.5 gram, q12h
     Dates: start: 20121118, end: 20121122
  16. CEFOPERAZONE [Concomitant]
     Dosage: UNK UNK, q12h
     Route: 042
     Dates: start: 20121124
  17. SULBACTAM SODIUM [Concomitant]
     Dosage: 1 gram, q12h
     Dates: start: 20121124
  18. AMBROXOL [Concomitant]
     Dosage: 15 mg, q12h
     Route: 055
     Dates: start: 20121125
  19. AMBROXOL [Concomitant]
     Dosage: 30 mg, qid
     Dates: start: 20121126
  20. CHYMOTRYPSIN [Concomitant]
     Dosage: 4000 unit, q12h
     Route: 055
     Dates: start: 20121125
  21. GENTAMICIN [Concomitant]
     Dosage: 80000 unit, q12h
     Route: 055
     Dates: start: 20121125
  22. FUROSEMIDE [Concomitant]
     Dosage: UNK
     Dates: start: 20121107
  23. METOCLOPRAMIDE [Concomitant]
     Dosage: UNK
     Dates: start: 20121107
  24. AMMONIA [Concomitant]
     Dosage: UNK
     Dates: start: 20121107
  25. DIPHENHYDRAMINE [Concomitant]
     Dosage: UNK
     Dates: start: 20121107
  26. MANNITOL [Concomitant]
     Dosage: UNK
     Dates: start: 20121111
  27. DESLANOSIDE [Concomitant]
     Dosage: UNK
     Dates: start: 20121111
  28. AMINOPYRINE [Concomitant]
     Dosage: 0.1 gram, UNK
  29. ANTIPYRINE [Concomitant]
     Dosage: 40 mg, UNK
  30. BARBITAL [Concomitant]
     Dosage: 18 mg, UNK

REACTIONS (3)
  - Cerebral infarction [Fatal]
  - Pruritus [Recovered/Resolved]
  - Hypersensitivity [Recovered/Resolved]
